FAERS Safety Report 17192613 (Version 1)
Quarter: 2019Q4

REPORT INFORMATION
  Report Type: Spontaneous
  Country: US (occurrence: US)
  Receive Date: 20191202
  Receipt Date: 20191202
  Transmission Date: 20200122
  Serious: No
  Sender: FDA-Public Use
  Company Number: None

PATIENT
  Age: 32 Year
  Sex: Male
  Weight: 122.47 kg

DRUGS (1)
  1. KETOCONAZOLE AND 2% TOPICAL CREAM [Suspect]
     Active Substance: KETOCONAZOLE
     Indication: FUNGAL INFECTION
     Dosage: ?          QUANTITY:2 % PERCENT;?
     Route: 061
     Dates: end: 20191028

REACTIONS (2)
  - Therapeutic product effect decreased [None]
  - Incorrect dose administered [None]

NARRATIVE: CASE EVENT DATE: 20000801
